FAERS Safety Report 7627744-2 (Version None)
Quarter: 2011Q3

REPORT INFORMATION
  Report Type: 
  Country: None (occurrence: None)
  Receive Date: 20110721
  Receipt Date: 20110712
  Transmission Date: 20111222
  Serious: Yes (Death, Hospitalization, Other)
  Sender: FDA-Public Use
  Company Number: US-BAXTER-2011BH018415

PATIENT
  Age: 61 Year
  Sex: Male

DRUGS (1)
  1. DIANEAL [Suspect]
     Indication: PERITONEAL DIALYSIS
     Route: 033
     Dates: start: 20040101

REACTIONS (8)
  - DISEASE COMPLICATION [None]
  - DEATH [None]
  - PERIPHERAL VASCULAR DISORDER [None]
  - RESPIRATORY ARREST [None]
  - INFECTION [None]
  - PNEUMONIA [None]
  - SEPSIS [None]
  - CARDIAC ARREST [None]
